FAERS Safety Report 15842521 (Version 6)
Quarter: 2020Q3

REPORT INFORMATION
  Report Type: Spontaneous
  Country: US (occurrence: US)
  Receive Date: 20190118
  Receipt Date: 20200813
  Transmission Date: 20201102
  Serious: No
  Sender: FDA-Public Use
  Company Number: US-009507513-1901USA004025

PATIENT
  Age: 62 Year
  Sex: Female

DRUGS (6)
  1. PROVENTIL [Suspect]
     Active Substance: ALBUTEROL
     Dosage: UNK
     Route: 055
  2. PROVENTIL [Suspect]
     Active Substance: ALBUTEROL
     Dosage: UNK
     Route: 055
  3. PROVENTIL [Suspect]
     Active Substance: ALBUTEROL
     Indication: ASTHMA
     Dosage: UNK
     Route: 055
     Dates: start: 1994
  4. PROVENTIL [Suspect]
     Active Substance: ALBUTEROL
     Dosage: 1? 2 PUFFS/ EVERY 4 TO 6 HOURS, AS NEEDED
     Route: 055
     Dates: start: 20200614
  5. PROVENTIL [Suspect]
     Active Substance: ALBUTEROL
     Dosage: UNK
     Route: 055
  6. PROVENTIL [Suspect]
     Active Substance: ALBUTEROL
     Dosage: UNK
     Route: 055

REACTIONS (10)
  - Product quality issue [Unknown]
  - Poor quality device used [Unknown]
  - Oral discomfort [Not Recovered/Not Resolved]
  - Product quality issue [Unknown]
  - Product quality issue [Unknown]
  - Oral discomfort [Unknown]
  - Ankle fracture [Unknown]
  - Poor quality device used [Unknown]
  - Poor quality device used [Unknown]
  - Wrong technique in product usage process [Unknown]

NARRATIVE: CASE EVENT DATE: 20180910
